FAERS Safety Report 6838720-1 (Version None)
Quarter: 2010Q3

REPORT INFORMATION
  Report Type: 
  Country: None (occurrence: None)
  Receive Date: 20100713
  Receipt Date: 20070717
  Transmission Date: 20110219
  Serious: No
  Sender: FDA-Public Use
  Company Number: US-PFIZER INC-2007047466

PATIENT
  Sex: Male
  Weight: 68.181 kg

DRUGS (3)
  1. CHANTIX [Suspect]
     Indication: SMOKING CESSATION THERAPY
     Dates: start: 20070501
  2. PRAVACHOL [Concomitant]
     Indication: BLOOD CHOLESTEROL
  3. PERCOCET [Concomitant]

REACTIONS (3)
  - DYSGEUSIA [None]
  - MALAISE [None]
  - MUSCLE SPASMS [None]
